FAERS Safety Report 5080893-8 (Version None)
Quarter: 2006Q3

REPORT INFORMATION
  Report Type: 
  Country: None (occurrence: None)
  Receive Date: 20060810
  Receipt Date: 20060803
  Transmission Date: 20061208
  Serious: No
  Sender: FDA-Public Use
  Company Number: CH-2006-012500

PATIENT
  Age: 33 Year
  Sex: Female

DRUGS (2)
  1. YASMIN [Suspect]
     Indication: ORAL CONTRACEPTION
     Dosage: SEE IMAGE
     Dates: start: 20030101, end: 20060201
  2. YASMIN [Suspect]
     Indication: ORAL CONTRACEPTION
     Dosage: SEE IMAGE
     Dates: start: 20060501

REACTIONS (4)
  - ABDOMINAL PAIN [None]
  - NAUSEA [None]
  - UTERINE LEIOMYOMA [None]
  - VERTIGO [None]
